FAERS Safety Report 7622071-1 (Version None)
Quarter: 2011Q3

REPORT INFORMATION
  Report Type: 
  Country: None (occurrence: None)
  Receive Date: 20110720
  Receipt Date: 20101207
  Transmission Date: 20111222
  Serious: Yes (Hospitalization, Other)
  Sender: FDA-Public Use
  Company Number: US-BAYER-201038357NA

PATIENT
  Age: 39 Year
  Sex: Female
  Weight: 172.34 kg

DRUGS (17)
  1. FLOVENT [Concomitant]
     Dosage: 440 MG, UNK
  2. ALBUTEROL INHALER [Concomitant]
  3. MOBIC [Concomitant]
     Dosage: UNK
     Dates: start: 20030808
  4. LISINOPRIL AND HYDROCHLOROTHIAZIDE [Concomitant]
     Dosage: UNK
     Dates: start: 20030508
  5. SYNTHROID [Concomitant]
     Dosage: 200 MG, UNK
  6. ZOCOR [Concomitant]
     Dosage: UNK
     Dates: start: 20030928
  7. LISINOPRIL AND HYDROCHLOROTHIAZIDE [Concomitant]
     Dosage: UNK
     Dates: start: 20030603
  8. DROSPIRENONE AND ETHINYL ESTRADIOL [Suspect]
     Indication: ACNE
  9. GLUCOPHAGE [Concomitant]
     Dosage: 1000 MG, UNK
  10. ZOCOR [Concomitant]
     Dosage: UNK
     Dates: start: 20090401
  11. PRILOSEC [Concomitant]
     Dosage: 20 MG, UNK
  12. DARVOCET-N 50 [Concomitant]
     Dosage: 100 MG, UNK
  13. YAZ [Suspect]
     Indication: ACNE
  14. YASMIN [Suspect]
     Indication: ACNE
     Dosage: UNK
     Dates: start: 20030224, end: 20040101
  15. ACTOS [Concomitant]
  16. GLUCOTROL XL [Concomitant]
     Dosage: 10 MG, UNK
  17. SEREVENT [Concomitant]

REACTIONS (6)
  - HEART RATE INCREASED [None]
  - INJURY [None]
  - PANIC ATTACK [None]
  - DEEP VEIN THROMBOSIS [None]
  - PULMONARY THROMBOSIS [None]
  - CARDIAC DISORDER [None]
